FAERS Safety Report 22529108 (Version 1)
Quarter: 2023Q2

REPORT INFORMATION
  Report Type: Spontaneous
  Country: US (occurrence: US)
  Receive Date: 20230607
  Receipt Date: 20230607
  Transmission Date: 20230722
  Serious: No
  Sender: FDA-Public Use
  Company Number: US-JNJFOC-20230572648

PATIENT
  Sex: Female

DRUGS (1)
  1. TYLENOL 8 HR ARTHRITIS PAIN [Suspect]
     Active Substance: ACETAMINOPHEN
     Indication: Product used for unknown indication
     Dosage: PATIENT MAY HAVE TAKEN FOUR DOSES OF TWO CAPLETS EACH IN 24 HOURS (4 TIMES IN 24 HRS)
     Route: 065

REACTIONS (2)
  - Nausea [Unknown]
  - Overdose [Unknown]

NARRATIVE: CASE EVENT DATE: 20230501
